FAERS Safety Report 9478315 (Version 2)
Quarter: 2013Q4

REPORT INFORMATION
  Report Type: Spontaneous
  Country: FR (occurrence: None)
  Receive Date: 20130822
  Receipt Date: 20131202
  Transmission Date: 20140711
  Serious: Yes (Hospitalization)
  Sender: FDA-Public Use
  Company Number: FR-ALSI-201300211

PATIENT
  Age: 66 Year
  Sex: Male

DRUGS (1)
  1. OXGENE [Suspect]
     Dosage: 51 ONCE A MINUTE RESPIRATORY
     Dates: start: 20120924

REACTIONS (6)
  - Intentional drug misuse [None]
  - Accident [None]
  - Thermal burn [None]
  - Scab [None]
  - Fall [None]
  - Scar [None]
